FAERS Safety Report 7379863-6 (Version None)
Quarter: 2011Q1

REPORT INFORMATION
  Report Type: 
  Country: None (occurrence: None)
  Receive Date: 20110329
  Receipt Date: 20110321
  Transmission Date: 20110831
  Serious: Yes (Death, Other)
  Sender: FDA-Public Use
  Company Number: TW-NOVOPROD-324074

PATIENT
  Age: 58 Year
  Sex: Female

DRUGS (2)
  1. INSULIN INSULATARD NPH NORDISK [Suspect]
     Indication: TYPE 2 DIABETES MELLITUS
     Dosage: 22 IU, QD
     Route: 058
  2. ACTRAPID HM [Suspect]
     Indication: TYPE 2 DIABETES MELLITUS
     Dosage: 22 IU, TID
     Route: 058

REACTIONS (4)
  - GRAND MAL CONVULSION [None]
  - DIABETES MELLITUS INADEQUATE CONTROL [None]
  - NEUROGLYCOPENIA [None]
  - COMA [None]
